FAERS Safety Report 9958879 (Version 1)
Quarter: 2014Q1

REPORT INFORMATION
  Report Type: Report from Study
  Country: US (occurrence: US)
  Receive Date: 20140305
  Receipt Date: 20140305
  Transmission Date: 20141002
  Serious: No
  Sender: FDA-Public Use
  Company Number: US-ABBVIE-13P-163-1103362-00

PATIENT
  Age: 57 Year
  Sex: Female

DRUGS (12)
  1. HUMIRA [Suspect]
     Indication: CROHN^S DISEASE
     Dates: start: 20130415
  2. ALIGN [Concomitant]
     Indication: PRODUCT USED FOR UNKNOWN INDICATION
  3. PENTASA [Concomitant]
     Indication: CROHN^S DISEASE
  4. IMURAN [Concomitant]
     Indication: CROHN^S DISEASE
     Dosage: 50MG 1 1/2 A DAY
  5. TRADJENTA [Concomitant]
     Indication: DIABETES MELLITUS
  6. BIOTIN [Concomitant]
     Indication: PRODUCT USED FOR UNKNOWN INDICATION
  7. MULTIVITAMIN [Concomitant]
     Indication: PRODUCT USED FOR UNKNOWN INDICATION
  8. FISH OIL [Concomitant]
     Indication: PRODUCT USED FOR UNKNOWN INDICATION
     Dosage: 2 A DAY
  9. CINNAMON [Concomitant]
     Indication: SUPPLEMENTATION THERAPY
  10. BENADRYL [Concomitant]
     Indication: HYPERSENSITIVITY
     Dosage: AT NIGHT
  11. LOMOTIL [Concomitant]
     Indication: DIARRHOEA
     Dosage: 1 A DAY AS NEEDED
  12. ALEVE [Concomitant]
     Indication: ARTHRALGIA
     Dosage: 1 A DAY AS NEEDED

REACTIONS (1)
  - Injection site haemorrhage [Recovered/Resolved]
